FAERS Safety Report 7129575-9 (Version None)
Quarter: 2010Q4

REPORT INFORMATION
  Report Type: 
  Country: None (occurrence: None)
  Receive Date: 20101130
  Receipt Date: 20101123
  Transmission Date: 20110411
  Serious: Yes (Other)
  Sender: FDA-Public Use
  Company Number: US-PFIZER INC-2010156254

PATIENT
  Sex: Female
  Weight: 78.458 kg

DRUGS (3)
  1. XANAX [Suspect]
     Indication: PANIC ATTACK
     Dosage: 0.25 MG DAILY
     Route: 048
  2. XANAX [Suspect]
     Dosage: 0.5 MG DAILY
  3. XANAX [Suspect]
     Dosage: 1 MG DAILY

REACTIONS (1)
  - INTRACRANIAL ANEURYSM [None]
